FAERS Safety Report 19820166 (Version 1)
Quarter: 2021Q3

REPORT INFORMATION
  Report Type: Spontaneous
  Country: CA (occurrence: CA)
  Receive Date: 20210913
  Receipt Date: 20210913
  Transmission Date: 20211014
  Serious: Yes (Other)
  Sender: FDA-Public Use
  Company Number: CA-SAMSUNG BIOEPIS-SB-2021-21593

PATIENT
  Age: 72 Year
  Sex: Male

DRUGS (1)
  1. INFLIXIMAB [Suspect]
     Active Substance: INFLIXIMAB
     Indication: COLITIS ULCERATIVE
     Route: 042

REACTIONS (7)
  - Chest pain [Unknown]
  - Influenza like illness [Unknown]
  - Chest discomfort [Unknown]
  - Neoplasm malignant [Unknown]
  - Dermatitis contact [Unknown]
  - Malaise [Unknown]
  - Drug specific antibody present [Unknown]
